FAERS Safety Report 10012555 (Version 4)
Quarter: 2020Q2

REPORT INFORMATION
  Report Type: Report from Study
  Country: JP (occurrence: JP)
  Receive Date: 20140314
  Receipt Date: 20200427
  Transmission Date: 20200713
  Serious: Yes (Hospitalization, Other)
  Sender: FDA-Public Use
  Company Number: JP-JNJFOC-20140308779

PATIENT
  Age: 68 Year
  Sex: Male
  Weight: 79 kg

DRUGS (6)
  1. DIFLAL [Concomitant]
     Indication: PSORIASIS
     Route: 062
  2. MAXACALCITOL [Concomitant]
     Active Substance: MAXACALCITOL
     Indication: PSORIASIS
     Route: 061
  3. REMICADE [Suspect]
     Active Substance: INFLIXIMAB
     Indication: PSORIASIS
     Dosage: 1 PER 1 DAY
     Route: 042
     Dates: start: 201112, end: 20111202
  4. TALION [Concomitant]
     Indication: PSORIASIS
     Route: 048
  5. TALION [Concomitant]
     Route: 048
  6. ZYRTEC [Concomitant]
     Active Substance: CETIRIZINE HYDROCHLORIDE
     Indication: PSORIASIS
     Route: 048

REACTIONS (4)
  - Therapeutic response decreased [Unknown]
  - Tuberculin test positive [Unknown]
  - Squamous cell carcinoma of lung [Recovering/Resolving]
  - Interstitial lung disease [Unknown]

NARRATIVE: CASE EVENT DATE: 20111228
